FAERS Safety Report 23525099 (Version 1)
Quarter: 2024Q1

REPORT INFORMATION
  Report Type: Spontaneous
  Country: US (occurrence: US)
  Receive Date: 20240215
  Receipt Date: 20240215
  Transmission Date: 20240410
  Serious: Yes (Other)
  Sender: FDA-Public Use
  Company Number: US-BRISTOL-MYERS SQUIBB COMPANY-2024-013518

PATIENT
  Age: 74 Year
  Sex: Female

DRUGS (1)
  1. ABECMA [Suspect]
     Active Substance: IDECABTAGENE VICLEUCEL
     Indication: Plasma cell myeloma
     Dosage: DOSE : UNAVAILABLE;     FREQ : ONE TIME
     Route: 042
     Dates: start: 202301, end: 202301

REACTIONS (3)
  - Cytopenia [Unknown]
  - Neutropenia [Unknown]
  - Biopsy bone marrow abnormal [Unknown]
